FAERS Safety Report 19381789 (Version 1)
Quarter: 2021Q2

REPORT INFORMATION
  Report Type: Spontaneous
  Country: US (occurrence: US)
  Receive Date: 20210607
  Receipt Date: 20210607
  Transmission Date: 20210717
  Serious: No
  Sender: FDA-Public Use
  Company Number: US-SA-2021SA186822

PATIENT
  Sex: Male

DRUGS (20)
  1. NORMAL SALINE [Concomitant]
     Active Substance: SODIUM CHLORIDE
  2. IMITREX [Concomitant]
     Active Substance: SUMATRIPTAN SUCCINATE
  3. LIDOCAINE. [Concomitant]
     Active Substance: LIDOCAINE
  4. STERILE WATER [Concomitant]
     Active Substance: WATER
  5. MESALAMINE. [Concomitant]
     Active Substance: MESALAMINE
  6. AZELASTINE. [Concomitant]
     Active Substance: AZELASTINE HYDROCHLORIDE
  7. FLUBLOK [Concomitant]
     Active Substance: INFLUENZA A VIRUS A/CALIFORNIA/7/2009 (H1N1) RECOMBINANT HEMAGGLUTININ ANTIGEN\INFLUENZA A VIRUS A/VICTORIA/361/2011 (H3N2) RECOMBINANT HEMAGGLUTININ ANTIGEN\INFLUENZA B VIRUS B/WISCONSIN/1/2010 RECOMBINANT HEMAGGLUTININ ANTIGEN
  8. FLUTICASONE. [Concomitant]
     Active Substance: FLUTICASONE
  9. ACETAMINOPHEN. [Concomitant]
     Active Substance: ACETAMINOPHEN
  10. AMOXICILLIN. [Concomitant]
     Active Substance: AMOXICILLIN
  11. LORATADINE D [Concomitant]
     Active Substance: LORATADINE\PSEUDOEPHEDRINE SULFATE
  12. FAMOTIDINE. [Concomitant]
     Active Substance: FAMOTIDINE
  13. FABRAZYME [Suspect]
     Active Substance: AGALSIDASE BETA
     Indication: MUCOPOLYSACCHARIDOSIS
     Dosage: 80 MG, QOW
     Route: 042
     Dates: start: 20110926
  14. PROGRAF [Concomitant]
     Active Substance: TACROLIMUS
  15. DIPHENHYDRAMINE. [Concomitant]
     Active Substance: DIPHENHYDRAMINE
  16. EPINEPHRINE. [Concomitant]
     Active Substance: EPINEPHRINE
  17. CRESTOR [Concomitant]
     Active Substance: ROSUVASTATIN CALCIUM
  18. CREON [Concomitant]
     Active Substance: PANCRELIPASE AMYLASE\PANCRELIPASE LIPASE\PANCRELIPASE PROTEASE
  19. HEPARIN [Concomitant]
     Active Substance: HEPARIN SODIUM
  20. MYCOPHENOLIC ACID. [Concomitant]
     Active Substance: MYCOPHENOLIC ACID

REACTIONS (2)
  - Ear infection [Unknown]
  - Product use in unapproved indication [Unknown]
